FAERS Safety Report 6671312-6 (Version None)
Quarter: 2010Q2

REPORT INFORMATION
  Report Type: 
  Country: None (occurrence: None)
  Receive Date: 20100406
  Receipt Date: 20100406
  Transmission Date: 20101027
  Serious: Yes (Other)
  Sender: FDA-Public Use
  Company Number: None

PATIENT
  Age: 55 Year
  Sex: Female
  Weight: 85.5 kg

DRUGS (19)
  1. FORTEO [Suspect]
     Indication: OSTEOPOROSIS
     Dosage: 20 MCG DAILY INJECTION
     Dates: start: 20090916, end: 20100322
  2. REBIF [Concomitant]
  3. ATENOLOL [Concomitant]
  4. FUROSEMIDE [Concomitant]
  5. AMLODIPINE [Concomitant]
  6. BESYLATE [Concomitant]
  7. POTASSIUM CHLORIDE [Concomitant]
  8. RANITIDINE HCL [Concomitant]
  9. HYDROCORTISONE [Concomitant]
  10. AZATHIOPRINE [Concomitant]
  11. CELEBREX [Concomitant]
  12. BACLOFEN [Concomitant]
  13. CYCLOBENZAPRINE [Concomitant]
  14. TRAZODONE [Concomitant]
  15. ADVAIR DISKUS 100/50 [Concomitant]
  16. PROAIR HFA [Concomitant]
  17. PREMARIN [Concomitant]
  18. PROGESTERONE [Concomitant]
  19. HYDROCODONE BITARTRATE AND ACETAMINOPHEN [Concomitant]

REACTIONS (9)
  - BLOOD PRESSURE INCREASED [None]
  - CHEST PAIN [None]
  - DRUG DOSE OMISSION [None]
  - ERYTHEMA [None]
  - FEELING HOT [None]
  - HEADACHE [None]
  - NECK PAIN [None]
  - PALPITATIONS [None]
  - SENSATION OF PRESSURE [None]
